FAERS Safety Report 21336378 (Version 1)
Quarter: 2022Q3

REPORT INFORMATION
  Report Type: Spontaneous
  Country: US (occurrence: None)
  Receive Date: 20220914
  Receipt Date: 20220914
  Transmission Date: 20221027
  Serious: Yes (Hospitalization, Other)
  Sender: FDA-Public Use
  Company Number: None

PATIENT
  Age: 26 Year
  Sex: Female

DRUGS (5)
  1. UNISOM SLEEPTABS [Suspect]
     Active Substance: DOXYLAMINE SUCCINATE
     Indication: Nausea
     Dosage: 12.5MG PRN PO
     Route: 048
     Dates: start: 20220503
  2. LORATADINE [Suspect]
     Active Substance: LORATADINE
     Indication: Nausea
     Dosage: 10MG QD PO
     Route: 048
     Dates: start: 20220412
  3. VITAMINS [Concomitant]
     Active Substance: VITAMINS
  4. IRON [Concomitant]
     Active Substance: IRON
  5. VITAMIN B6 [Concomitant]
     Active Substance: PYRIDOXINE HYDROCHLORIDE

REACTIONS (4)
  - Pre-eclampsia [None]
  - Premature delivery [None]
  - Caesarean section [None]
  - Maternal exposure during pregnancy [None]

NARRATIVE: CASE EVENT DATE: 20220909
